FAERS Safety Report 7122633-4 (Version None)
Quarter: 2010Q4

REPORT INFORMATION
  Report Type: 
  Country: None (occurrence: None)
  Receive Date: 20101112
  Receipt Date: 20101104
  Transmission Date: 20110411
  Serious: Yes (Hospitalization)
  Sender: FDA-Public Use
  Company Number: 021530

PATIENT
  Sex: Male

DRUGS (4)
  1. KEPPRA [Suspect]
     Dosage: (ORAL)
     Route: 048
     Dates: start: 20100919, end: 20100930
  2. TAZOCILLINE (TAZOCILLINE 4G/500MG) [Suspect]
     Dosage: (4 G QID INTRAVENOUS (NOT OTHERWISE SPECIFIED))
     Route: 042
     Dates: start: 20100913, end: 20100924
  3. CIFLOX /00697201/ (CIFLOX) [Suspect]
     Dosage: (500 MG BID ORAL)
     Route: 048
     Dates: start: 20100904, end: 20100930
  4. SELOKEN /00376902/ (SELOKEN) [Suspect]
     Dosage: (50 MG BID ORAL)
     Route: 048
     Dates: start: 20100823, end: 20101008

REACTIONS (1)
  - RASH MACULO-PAPULAR [None]
